FAERS Safety Report 4482603-1 (Version None)
Quarter: 2004Q4

REPORT INFORMATION
  Report Type: 
  Country: None (occurrence: None)
  Receive Date: 20041022
  Receipt Date: 20041007
  Transmission Date: 20050328
  Serious: Yes (Other)
  Sender: FDA-Public Use
  Company Number: JP-JNJFOC-20041006095

PATIENT

DRUGS (1)
  1. OXYBUTYNIN HYDROCHLORIDE [Suspect]
     Indication: DRUG USE FOR UNKNOWN INDICATION
     Route: 049

REACTIONS (3)
  - LACRIMATION INCREASED [None]
  - PULMONARY EMBOLISM [None]
  - PULMONARY INFARCTION [None]
